FAERS Safety Report 8111406-1 (Version None)
Quarter: 2012Q1

REPORT INFORMATION
  Report Type: 
  Country: None (occurrence: None)
  Receive Date: 20120203
  Receipt Date: 20111115
  Transmission Date: 20120608
  Serious: No
  Sender: FDA-Public Use
  Company Number: US-GLAXOSMITHKLINE-A0953131A

PATIENT
  Age: 55 Year
  Sex: Female

DRUGS (3)
  1. LAMICTAL [Suspect]
     Indication: EPILEPSY
     Dosage: 50MG PER DAY
     Route: 048
     Dates: start: 20111111
  2. PHENOBARBITAL TAB [Concomitant]
  3. ASPIRIN [Concomitant]

REACTIONS (3)
  - PRURITUS [None]
  - TONGUE DISORDER [None]
  - LIP SWELLING [None]
